FAERS Safety Report 4751423-2 (Version None)
Quarter: 2005Q3

REPORT INFORMATION
  Report Type: 
  Country: None (occurrence: None)
  Receive Date: 20050822
  Receipt Date: 20050808
  Transmission Date: 20060218
  Serious: Yes (Other)
  Sender: FDA-Public Use
  Company Number: 2005112791

PATIENT
  Age: 91 Year
  Sex: Male
  Weight: 30 kg

DRUGS (12)
  1. VFEND [Suspect]
     Indication: BRONCHOPULMONARY ASPERGILLOSIS
     Dosage: 180 MG (90 MG, BID), INTRAVENOUS
     Route: 042
     Dates: start: 20050722, end: 20050725
  2. MAGNESIUM OXIDE (MAGNESIUM OXIDE) [Concomitant]
  3. LAC B (LACTOBACILLUS BIFIDUS, LYOPHILIZED) [Concomitant]
  4. FERRO-GRANDUMET (FERROUS SULFATE) [Concomitant]
  5. NITRODERM [Concomitant]
  6. TORSEMIDE [Concomitant]
  7. RANITIDINE HYDROCHLORIDE [Concomitant]
  8. SIGMART (NICORANDIL) [Concomitant]
  9. DILTIAZEM HYDROCHLORIDE [Concomitant]
  10. ADONA (CARBAZOCHROME SODIUM SULFONATE) [Concomitant]
  11. TRANSAMIN (TRANEXAMIC ACID) [Concomitant]
  12. GLUCOSE (GLUCOSE) [Concomitant]

REACTIONS (4)
  - BRADYCARDIA [None]
  - DEPRESSED LEVEL OF CONSCIOUSNESS [None]
  - ELECTROCARDIOGRAM QT PROLONGED [None]
  - MYOCLONUS [None]
